FAERS Safety Report 8879979 (Version 1)
Quarter: 2012Q4

REPORT INFORMATION
  Report Type: Report from Study
  Country: GB (occurrence: GB)
  Receive Date: 20121101
  Receipt Date: 20121101
  Transmission Date: 20130627
  Serious: Yes (Death)
  Sender: FDA-Public Use
  Company Number: GB-AMGEN-GBRCT2012068678

PATIENT
  Age: 64 Year
  Sex: Male
  Weight: 90 kg

DRUGS (2)
  1. ETANERCEPT [Suspect]
     Indication: RHEUMATOID ARTHRITIS
     Dosage: 25 mg, 2 times/wk
     Dates: start: 20040113
  2. LEFLUNOMIDE [Concomitant]
     Dosage: UNK
     Dates: start: 20080317

REACTIONS (3)
  - Bronchial carcinoma [Fatal]
  - Chronic obstructive pulmonary disease [Fatal]
  - Bronchopneumonia [Fatal]
